FAERS Safety Report 17464283 (Version 2)
Quarter: 2020Q1

REPORT INFORMATION
  Report Type: Report from Study
  Country: None (occurrence: US)
  Receive Date: 20200226
  Receipt Date: 20200306
  Transmission Date: 20200409
  Serious: Yes (Hospitalization)
  Sender: FDA-Public Use
  Company Number: US-ABBVIE-20K-163-3292218-00

PATIENT
  Sex: Female

DRUGS (1)
  1. VENCLEXTA [Suspect]
     Active Substance: VENETOCLAX
     Indication: MYELODYSPLASTIC SYNDROME
     Route: 048
     Dates: start: 20200225

REACTIONS (4)
  - Platelet count decreased [Unknown]
  - Diarrhoea [Unknown]
  - Haemoglobin increased [Unknown]
  - Nausea [Unknown]

NARRATIVE: CASE EVENT DATE: 2020
